FAERS Safety Report 8127375-4 (Version None)
Quarter: 2011Q4

REPORT INFORMATION
  Report Type: 
  Country: None (occurrence: None)
  Receive Date: 20111227
  Receipt Date: 20111026
  Transmission Date: 20120403
  Serious: No
  Sender: FDA-Public Use
  Company Number: PHEH2011US07896

PATIENT
  Age: 61 Year
  Sex: Male
  Weight: 83.9 kg

DRUGS (5)
  1. FOSAMAX (ALENDRONATE SODIUM) TABLET, 10 MG [Concomitant]
  2. GILENYA [Suspect]
     Dosage: 0.5 MG, QD, ORAL
     Route: 048
  3. BACLOFEN (BACLOFEN) TABLET, 10 MG [Concomitant]
  4. LIPITOR (ATORVASTATIN CALCIUM) TABLET, 10 MG [Concomitant]
  5. BYSTOLIC (NEBIVOLOL HYDROCHLORIDE) TABLET, 2.5 MG [Concomitant]

REACTIONS (1)
  - FATIGUE [None]
